FAERS Safety Report 23842166 (Version 1)
Quarter: 2024Q2

REPORT INFORMATION
  Report Type: Spontaneous
  Country: CN (occurrence: CN)
  Receive Date: 20240510
  Receipt Date: 20240510
  Transmission Date: 20240716
  Serious: Yes (Other)
  Sender: FDA-Public Use
  Company Number: CN-PFIZER INC-PV202400060234

PATIENT
  Sex: Male

DRUGS (1)
  1. CIBINQO [Suspect]
     Active Substance: ABROCITINIB
     Dosage: 1 DF, 1X/DAY
     Route: 048
     Dates: start: 20240311

REACTIONS (2)
  - Haematemesis [Not Recovered/Not Resolved]
  - Mouth haemorrhage [Unknown]

NARRATIVE: CASE EVENT DATE: 20240501
